FAERS Safety Report 24162969 (Version 1)
Quarter: 2024Q3

REPORT INFORMATION
  Report Type: Spontaneous
  Country: AU (occurrence: AU)
  Receive Date: 20240801
  Receipt Date: 20240801
  Transmission Date: 20241017
  Serious: Yes (Other)
  Sender: CURRAX PHARMACEUTICALS
  Company Number: AU-NALPROPION PHARMACEUTICALS INC.-AU-2024CUR003610

PATIENT
  Age: 36 Year
  Sex: Male

DRUGS (1)
  1. CONTRAVE [Suspect]
     Active Substance: BUPROPION HYDROCHLORIDE\NALTREXONE HYDROCHLORIDE
     Indication: Product used for unknown indication
     Dosage: UNK
     Route: 065
     Dates: start: 202407, end: 202407

REACTIONS (6)
  - Depression suicidal [Unknown]
  - Abdominal discomfort [Unknown]
  - Depressed mood [Unknown]
  - Constipation [Unknown]
  - Nausea [Unknown]
  - Dry mouth [Unknown]

NARRATIVE: CASE EVENT DATE: 20240701
